FAERS Safety Report 8571662-2 (Version None)
Quarter: 2012Q3

REPORT INFORMATION
  Report Type: 
  Country: None (occurrence: None)
  Receive Date: 20120806
  Receipt Date: 20120725
  Transmission Date: 20120928
  Serious: Yes (Other)
  Sender: FDA-Public Use
  Company Number: CA-JNJFOC-20111104461

PATIENT
  Sex: Female
  Weight: 63.5 kg

DRUGS (3)
  1. METHOTREXATE [Concomitant]
     Dosage: 6 TABS
  2. REMICADE [Suspect]
     Indication: ANKYLOSING SPONDYLITIS
     Route: 042
     Dates: start: 20090522, end: 20111101
  3. PREDNISONE [Concomitant]
     Route: 048
     Dates: start: 20111003

REACTIONS (2)
  - HYPOAESTHESIA [None]
  - PAIN [None]
